FAERS Safety Report 18845253 (Version 1)
Quarter: 2021Q1

REPORT INFORMATION
  Report Type: Report from Study
  Country: US (occurrence: US)
  Receive Date: 20210204
  Receipt Date: 20210204
  Transmission Date: 20210419
  Serious: Yes (Hospitalization, Other)
  Sender: FDA-Public Use
  Company Number: US-TAKEDA-2021TUS006090

PATIENT
  Sex: Female
  Weight: 97.96 kg

DRUGS (14)
  1. ICATIBANT [Suspect]
     Active Substance: ICATIBANT ACETATE
     Indication: IMMUNE SYSTEM DISORDER
     Dosage: 30 MILLIGRAM, PRN
     Route: 058
     Dates: start: 20201210
  2. METFORMIN [Concomitant]
     Active Substance: METFORMIN HYDROCHLORIDE
  3. OMEPRAZOLE. [Concomitant]
     Active Substance: OMEPRAZOLE
  4. WARFARIN [Concomitant]
     Active Substance: WARFARIN
  5. METOPROLOL. [Concomitant]
     Active Substance: METOPROLOL
  6. ICATIBANT [Suspect]
     Active Substance: ICATIBANT ACETATE
     Indication: IMMUNE SYSTEM DISORDER
     Dosage: 30 MILLIGRAM, PRN
     Route: 058
     Dates: start: 20201210
  7. QUETIAPINE. [Concomitant]
     Active Substance: QUETIAPINE
  8. VENTOLINE [SALBUTAMOL] [Concomitant]
     Active Substance: ALBUTEROL SULFATE
  9. OXYCODONE [Concomitant]
     Active Substance: OXYCODONE
  10. DIAZEPAM. [Concomitant]
     Active Substance: DIAZEPAM
  11. PAROXETINE. [Concomitant]
     Active Substance: PAROXETINE
  12. MONTELUKAST [Concomitant]
     Active Substance: MONTELUKAST SODIUM
  13. ASPIRIN (E.C.) [Concomitant]
     Active Substance: ASPIRIN
  14. DANAZOL. [Concomitant]
     Active Substance: DANAZOL

REACTIONS (2)
  - Gastric haemorrhage [Unknown]
  - Hereditary angioedema [Unknown]
